FAERS Safety Report 20224696 (Version 1)
Quarter: 2021Q4

REPORT INFORMATION
  Report Type: Spontaneous
  Country: JP (occurrence: JP)
  Receive Date: 20211223
  Receipt Date: 20211223
  Transmission Date: 20220303
  Serious: Yes (Life-Threatening, Other)
  Sender: FDA-Public Use
  Company Number: JP-TEVA-2021-JP-1989510

PATIENT
  Age: 26 Year
  Sex: Female

DRUGS (9)
  1. PREDNISOLONE [Suspect]
     Active Substance: PREDNISOLONE
     Indication: Eosinophilic pneumonia chronic
     Dosage: STARTING DOSE UNSPECIFIED
     Route: 065
  2. PREDNISOLONE [Suspect]
     Active Substance: PREDNISOLONE
     Indication: Asthma
     Dosage: 7 MILLIGRAM DAILY;
     Route: 065
  3. PREDNISOLONE [Suspect]
     Active Substance: PREDNISOLONE
     Dosage: 5 MILLIGRAM DAILY;
     Route: 065
  4. SUPLATAST TOSILATE [Suspect]
     Active Substance: SUPLATAST TOSILATE
     Indication: Eosinophilic pneumonia chronic
     Dosage: 200 MILLIGRAM DAILY;
     Route: 065
  5. SUPLATAST TOSILATE [Suspect]
     Active Substance: SUPLATAST TOSILATE
     Indication: Asthma
  6. BUDESONIDE\FORMOTEROL FUMARATE [Concomitant]
     Active Substance: BUDESONIDE\FORMOTEROL FUMARATE
     Indication: Asthma
     Dosage: 2 PUFFS
     Route: 055
  7. Montelukast-sodium [Concomitant]
     Indication: Asthma
     Dosage: 10 MILLIGRAM DAILY;
     Route: 065
  8. MEPOLIZUMAB [Concomitant]
     Active Substance: MEPOLIZUMAB
     Indication: Eosinophilic pneumonia chronic
     Route: 058
  9. MEPOLIZUMAB [Concomitant]
     Active Substance: MEPOLIZUMAB
     Indication: Asthma

REACTIONS (1)
  - Drug ineffective [Unknown]
